FAERS Safety Report 7816199-0 (Version None)
Quarter: 2011Q4

REPORT INFORMATION
  Report Type: 
  Country: None (occurrence: None)
  Receive Date: 20111015
  Receipt Date: 20111010
  Transmission Date: 20120403
  Serious: Yes (Death)
  Sender: FDA-Public Use
  Company Number: ES-ROCHE-1003707

PATIENT
  Sex: Female
  Weight: 62 kg

DRUGS (3)
  1. PEGINTERFERON ALFA-2A [Suspect]
     Indication: HEPATITIS C
     Route: 058
     Dates: start: 20110330, end: 20110427
  2. PREDNISONE [Concomitant]
     Indication: LEUKOCYTOCLASTIC VASCULITIS
     Route: 042
     Dates: start: 20110613, end: 20110810
  3. COPEGUS [Suspect]
     Indication: HEPATITIS C
     Route: 048
     Dates: start: 20110330, end: 20110427

REACTIONS (3)
  - ANAEMIA [None]
  - THROMBOCYTOPENIA [None]
  - PANCYTOPENIA [None]
